FAERS Safety Report 18899907 (Version 1)
Quarter: 2021Q1

REPORT INFORMATION
  Report Type: Spontaneous
  Country: JP (occurrence: JP)
  Receive Date: 20210216
  Receipt Date: 20210216
  Transmission Date: 20210420
  Serious: Yes (Hospitalization, Other)
  Sender: FDA-Public Use
  Company Number: JP-TEVA-2021-JP-1879419

PATIENT
  Age: 60 Year
  Sex: Male

DRUGS (5)
  1. PREDNISOLONE. [Suspect]
     Active Substance: PREDNISOLONE
     Indication: VASCULITIS
     Dosage: 60 MILLIGRAM DAILY; TAPERED
     Route: 048
  2. CARBOPLATIN. [Suspect]
     Active Substance: CARBOPLATIN
     Indication: LUNG CARCINOMA CELL TYPE UNSPECIFIED RECURRENT
     Dosage: AREA UNDER THE CONCENTRATION?TIME CURVE: 5
     Route: 065
  3. PREDNISOLONE. [Suspect]
     Active Substance: PREDNISOLONE
     Indication: IMMUNE-MEDIATED ADVERSE REACTION
     Route: 048
  4. PEMETREXED. [Suspect]
     Active Substance: PEMETREXED
     Indication: LUNG CARCINOMA CELL TYPE UNSPECIFIED RECURRENT
     Dosage: 500 MG/M 2
     Route: 065
  5. PEMBROLIZUMAB. [Suspect]
     Active Substance: PEMBROLIZUMAB
     Indication: LUNG CARCINOMA CELL TYPE UNSPECIFIED RECURRENT
     Dosage: 200 MG/BODY
     Route: 065

REACTIONS (4)
  - Vasculitis [Recovering/Resolving]
  - Arterial thrombosis [Recovering/Resolving]
  - Acute kidney injury [Recovering/Resolving]
  - Immune-mediated adverse reaction [Recovering/Resolving]
